FAERS Safety Report 19424424 (Version 3)
Quarter: 2025Q1

REPORT INFORMATION
  Report Type: Spontaneous
  Country: US (occurrence: US)
  Receive Date: 20210616
  Receipt Date: 20250307
  Transmission Date: 20250409
  Serious: Yes (Hospitalization)
  Sender: SK LIFE SCIENCE
  Company Number: US-SK LIFE SCIENCE, INC.-SKPVG-2021-000439

PATIENT

DRUGS (15)
  1. XCOPRI [Suspect]
     Active Substance: CENOBAMATE
     Indication: Seizure
     Dosage: 12.5 MILLIGRAM, QHS (12.5MG,25MG TITRATION PACK)
     Route: 048
     Dates: start: 20210323
  2. XCOPRI [Suspect]
     Active Substance: CENOBAMATE
     Indication: Epilepsy
     Dosage: 150 MILLIGRAM, QHS
     Route: 048
     Dates: start: 20210522
  3. XCOPRI [Suspect]
     Active Substance: CENOBAMATE
     Route: 048
     Dates: start: 20210606, end: 20210618
  4. XCOPRI [Suspect]
     Active Substance: CENOBAMATE
     Route: 048
  5. XCOPRI [Suspect]
     Active Substance: CENOBAMATE
     Dosage: 250 MILLIGRAM, QD
     Route: 048
  6. LORAZEPAM [Suspect]
     Active Substance: LORAZEPAM
     Indication: Product used for unknown indication
     Dosage: 1 MILLIGRAM, TID
     Route: 065
  7. PHENOBARBITAL [Suspect]
     Active Substance: PHENOBARBITAL
     Indication: Product used for unknown indication
     Dosage: 97.2MG AND 37.4MG ONCE DAILY, QD
     Route: 065
     Dates: start: 20210606
  8. VIMPAT [Suspect]
     Active Substance: LACOSAMIDE
     Indication: Product used for unknown indication
     Route: 065
     Dates: start: 20210606
  9. VIMPAT [Suspect]
     Active Substance: LACOSAMIDE
     Dosage: 200 MILLIGRAM, BID, 1 AND HALF TWICE DAILY
     Route: 065
  10. VIMPAT [Suspect]
     Active Substance: LACOSAMIDE
     Dosage: UNK, BID, 1 PILL (200 MILLIGRAM) IN MORNING AND ONE AND HALF PILL IN EVENING
     Route: 065
     Dates: start: 20210415
  11. VIMPAT [Suspect]
     Active Substance: LACOSAMIDE
     Dosage: 200 MILLIGRAM, 1 PILL IN AM AND HALF PILL IN EVENING
     Route: 065
     Dates: start: 20210516
  12. LAMICTAL [Suspect]
     Active Substance: LAMOTRIGINE
     Indication: Product used for unknown indication
     Route: 065
  13. LAMICTAL [Suspect]
     Active Substance: LAMOTRIGINE
     Dosage: 200 MILLIGRAM, BID
     Route: 065
     Dates: end: 20210612
  14. KEPPRA [Suspect]
     Active Substance: LEVETIRACETAM
     Indication: Product used for unknown indication
     Dosage: 750 MILLIGRAM, QD, 2 TABLET
     Route: 065
  15. ZONISAMIDE [Suspect]
     Active Substance: ZONISAMIDE
     Indication: Product used for unknown indication
     Dosage: 100 MILLIGRAM, QD, 3 CAPSULES
     Route: 065

REACTIONS (26)
  - Seizure [Not Recovered/Not Resolved]
  - Fall [Not Recovered/Not Resolved]
  - Hand fracture [Not Recovered/Not Resolved]
  - Rib fracture [Not Recovered/Not Resolved]
  - Spinal compression fracture [Not Recovered/Not Resolved]
  - Pelvic fracture [Not Recovered/Not Resolved]
  - Stress fracture [Not Recovered/Not Resolved]
  - Illness [Recovered/Resolved]
  - Feeling abnormal [Recovered/Resolved]
  - Urinary tract disorder [Recovering/Resolving]
  - Fall [Not Recovered/Not Resolved]
  - Product availability issue [Recovered/Resolved]
  - Staring [Unknown]
  - Petit mal epilepsy [Not Recovered/Not Resolved]
  - Seizure [Recovered/Resolved]
  - Jaw clicking [Not Recovered/Not Resolved]
  - Bowel movement irregularity [Recovered/Resolved]
  - Therapy interrupted [Recovered/Resolved]
  - Seizure [Recovered/Resolved]
  - Headache [Not Recovered/Not Resolved]
  - Malaise [Recovered/Resolved]
  - Dizziness [Recovering/Resolving]
  - Head injury [Not Recovered/Not Resolved]
  - Gait disturbance [Not Recovered/Not Resolved]
  - Diarrhoea [Recovered/Resolved]
  - Malaise [Recovered/Resolved]

NARRATIVE: CASE EVENT DATE: 20210328
